FAERS Safety Report 13093123 (Version 1)
Quarter: 2017Q1

REPORT INFORMATION
  Report Type: Spontaneous
  Country: HR (occurrence: HR)
  Receive Date: 20170106
  Receipt Date: 20170106
  Transmission Date: 20170428
  Serious: Yes (Other)
  Sender: FDA-Public Use
  Company Number: HR-PFIZER INC-2017000509

PATIENT
  Age: 40 Year
  Sex: Female

DRUGS (4)
  1. XANAX [Suspect]
     Active Substance: ALPRAZOLAM
     Dosage: AROUND 20-50 TABLETS, SINGLE
     Route: 048
     Dates: start: 20160527, end: 20160527
  2. ZOLOFT [Suspect]
     Active Substance: SERTRALINE HYDROCHLORIDE
     Dosage: AROUND 20-50 TABLETS, SINGLE
     Route: 048
     Dates: start: 20160527, end: 20160527
  3. OLANZALUX [Suspect]
     Active Substance: OLANZAPINE
     Dosage: AROUND 20-50 TABLETS, SINGLE
     Route: 048
     Dates: start: 20160527, end: 20160527
  4. VELAFAX [Suspect]
     Active Substance: VENLAFAXINE HYDROCHLORIDE
     Dosage: AROUND 20-50 TABLETS, SINGLE
     Route: 048
     Dates: start: 20160527, end: 20160527

REACTIONS (13)
  - Blood urine present [Unknown]
  - Coagulopathy [Unknown]
  - Somnolence [Unknown]
  - Bradycardia [Unknown]
  - Hepatic enzyme increased [Unknown]
  - Tachycardia [Unknown]
  - Oliguria [Unknown]
  - Heart rate irregular [Unknown]
  - Arrhythmia supraventricular [Unknown]
  - Suicide attempt [Unknown]
  - Muscle enzyme increased [Unknown]
  - Intentional overdose [Unknown]
  - Stupor [Unknown]

NARRATIVE: CASE EVENT DATE: 20160527
